FAERS Safety Report 8750034 (Version 2)
Quarter: 2012Q4

REPORT INFORMATION
  Report Type: Report from Study
  Country: US (occurrence: None)
  Receive Date: 20120808
  Receipt Date: 20120905
  Transmission Date: 20130627
  Serious: Yes (Hospitalization)
  Sender: FDA-Public Use
  Company Number: 136553 - 2

PATIENT
  Age: 68 Year
  Sex: Male
  Weight: 72 kg

DRUGS (3)
  1. LEUCOVORIN CALCIUM [Suspect]
     Indication: COLORECTAL CANCER METASTATIC
     Dosage: 1 EVERY 14 DAYS
     Route: 042
     Dates: start: 20120109
  2. AMIODARONE (AMIODARONE) [Concomitant]
  3. TAMSULOSIN (TAMSULOSIN) [Concomitant]

REACTIONS (5)
  - Febrile neutropenia [None]
  - Laboratory test interference [None]
  - Hepatotoxicity [None]
  - Infection [None]
  - Hyperthermia [None]
